FAERS Safety Report 19078731 (Version 1)
Quarter: 2021Q1

REPORT INFORMATION
  Report Type: Other
  Country: FR (occurrence: FR)
  Receive Date: 20210331
  Receipt Date: 20210331
  Transmission Date: 20210420
  Serious: Yes (Hospitalization)
  Sender: FDA-Public Use
  Company Number: FR-INCYTE CORPORATION-2019IN013605

PATIENT

DRUGS (6)
  1. PEGASYS [Suspect]
     Active Substance: PEGINTERFERON ALFA-2A
     Indication: MYELOFIBROSIS
     Dosage: 90 UG, TIW
     Route: 058
     Dates: start: 201905
  2. KARDEGIC [Concomitant]
     Active Substance: ASPIRIN DL-LYSINE
     Indication: THROMBOSIS PROPHYLAXIS
     Dosage: 1 DF, QD
     Route: 048
  3. INEXIUM [ESOMEPRAZOLE SODIUM] [Concomitant]
     Active Substance: ESOMEPRAZOLE SODIUM
     Indication: PRODUCT USED FOR UNKNOWN INDICATION
     Dosage: 1 DF, QD
     Route: 048
  4. JAKAVI [Suspect]
     Active Substance: RUXOLITINIB
     Indication: MYELOFIBROSIS
     Dosage: 35 MG, QD
     Route: 048
     Dates: start: 20160907
  5. ALLOPURINOL. [Concomitant]
     Active Substance: ALLOPURINOL
     Indication: PROPHYLAXIS
     Dosage: 200 MG, QD
     Route: 048
     Dates: start: 2019
  6. COAPROVEL [Concomitant]
     Active Substance: HYDROCHLOROTHIAZIDE\IRBESARTAN
     Indication: HYPERTENSION
     Dosage: 1 DF, QD
     Route: 048

REACTIONS (5)
  - Bacteraemia [Recovered/Resolved]
  - Lung disorder [Recovered/Resolved]
  - Otitis media acute [Recovered/Resolved]
  - Aspergillus infection [Recovered/Resolved]
  - Chronic sinusitis [Recovered/Resolved]

NARRATIVE: CASE EVENT DATE: 20181226
